FAERS Safety Report 17969529 (Version 1)
Quarter: 2020Q3

REPORT INFORMATION
  Report Type: Spontaneous
  Country: US (occurrence: US)
  Receive Date: 20200701
  Receipt Date: 20200701
  Transmission Date: 20201103
  Serious: No
  Sender: FDA-Public Use
  Company Number: US-BAYER-2020-129807

PATIENT
  Age: 54 Year
  Sex: Female

DRUGS (1)
  1. MIRALAX [Suspect]
     Active Substance: POLYETHYLENE GLYCOL 3350
     Indication: INTESTINAL RESECTION
     Dosage: DRANK ENTIRE BOTTLE AT ONCE DOSE
     Route: 048
     Dates: start: 2014

REACTIONS (3)
  - Tenderness [Recovered/Resolved]
  - Product use in unapproved indication [Unknown]
  - Epistaxis [Recovered/Resolved]

NARRATIVE: CASE EVENT DATE: 2014
